FAERS Safety Report 16020768 (Version 2)
Quarter: 2019Q1

REPORT INFORMATION
  Report Type: Report from Study
  Country: GB (occurrence: GB)
  Receive Date: 20190301
  Receipt Date: 20190306
  Transmission Date: 20190418
  Serious: Yes (Other)
  Sender: FDA-Public Use
  Company Number: GB-AMGEN-GBRCT2012001512

PATIENT
  Age: 49 Year
  Sex: Male
  Weight: 109 kg

DRUGS (1)
  1. ETANERCEPT [Suspect]
     Active Substance: ETANERCEPT
     Indication: BEHCET^S SYNDROME
     Dosage: 25 MG, 2 TIMES/WK
     Route: 065
     Dates: start: 20060508

REACTIONS (2)
  - Metastases to lung [Unknown]
  - Rectal cancer metastatic [Unknown]

NARRATIVE: CASE EVENT DATE: 20110815
